FAERS Safety Report 11688660 (Version 1)
Quarter: 2015Q4

REPORT INFORMATION
  Report Type: Report from Study
  Country: US (occurrence: US)
  Receive Date: 20151102
  Receipt Date: 20151102
  Transmission Date: 20160304
  Serious: No
  Sender: FDA-Public Use
  Company Number: US-AMGEN-USASL2015112811

PATIENT
  Sex: Male

DRUGS (2)
  1. ENBREL [Suspect]
     Active Substance: ETANERCEPT
     Dosage: 50 MG, DOSE EVERY TWO WEEKS OR SOMETIMES EVEN EVERY THREE WEEKS
     Route: 065
  2. ENBREL [Suspect]
     Active Substance: ETANERCEPT
     Indication: PSORIASIS
     Dosage: 50 MG, QWK
     Route: 065
     Dates: start: 20040409

REACTIONS (8)
  - Psoriasis [Unknown]
  - Ill-defined disorder [Unknown]
  - Intentional product misuse [Unknown]
  - Drug effect decreased [Unknown]
  - Malaise [Unknown]
  - Injection site pain [Recovered/Resolved]
  - Cough [Unknown]
  - Nasopharyngitis [Unknown]
